FAERS Safety Report 9692269 (Version 1)
Quarter: 2013Q4

REPORT INFORMATION
  Report Type: Spontaneous
  Country: US (occurrence: US)
  Receive Date: 20131118
  Receipt Date: 20131118
  Transmission Date: 20140711
  Serious: Yes (Life-Threatening, Hospitalization)
  Sender: FDA-Public Use
  Company Number: US-BRISTOL-MYERS SQUIBB COMPANY-19798099

PATIENT
  Age: 59 Year
  Sex: Female

DRUGS (1)
  1. BYDUREON 2MG SUSPENSION [Suspect]
     Route: 058

REACTIONS (3)
  - Hyponatraemia [Recovered/Resolved]
  - Autoimmune haemolytic anaemia [Unknown]
  - Inappropriate schedule of drug administration [Unknown]
